FAERS Safety Report 6242133-3 (Version None)
Quarter: 2009Q2

REPORT INFORMATION
  Report Type: 
  Country: None (occurrence: None)
  Receive Date: 20090622
  Receipt Date: 20090622
  Transmission Date: 20091009
  Serious: Yes (Other)
  Sender: FDA-Public Use
  Company Number: None

PATIENT
  Sex: Female

DRUGS (1)
  1. MYCOPHENOLATE MOFETIL [Suspect]
     Indication: MYASTHENIA GRAVIS
     Dosage: 500MG 2 TABS TWICE A DAY BY MOUTH 1 MONTH/SYMPTOMS REPORTED 6/11/09
     Route: 048
     Dates: start: 20090611

REACTIONS (6)
  - ASTHENIA [None]
  - CONDITION AGGRAVATED [None]
  - DYSARTHRIA [None]
  - EYELID PTOSIS [None]
  - MYASTHENIA GRAVIS [None]
  - PRODUCT SUBSTITUTION ISSUE [None]
